FAERS Safety Report 6473820-X (Version None)
Quarter: 2009Q4

REPORT INFORMATION
  Report Type: 
  Country: None (occurrence: None)
  Receive Date: 20091130
  Receipt Date: 20091119
  Transmission Date: 20100525
  Serious: Yes (Death)
  Sender: FDA-Public Use
  Company Number: THQ2009A04596

PATIENT
  Age: 71 Year
  Sex: Female

DRUGS (23)
  1. ZOTON FASTAB (LANSOPRAZOLE) [Suspect]
     Indication: GASTRITIS
     Dosage: 30 MG (30 MG,1 IN 1 D) PER ORAL
     Route: 048
     Dates: start: 20061222, end: 20070924
  2. ACTONEL [Concomitant]
  3. TICLID [Concomitant]
  4. ANXICALM (DIAZEPAM) [Concomitant]
  5. CALCICHEW (CALCIUM CARBONATE) [Concomitant]
  6. CRESTOR [Concomitant]
  7. CYMBALTA [Concomitant]
  8. FASTUM (KETOPROFEN) [Concomitant]
  9. FOLIC ACID [Concomitant]
  10. AMLODIPINE BESYLATE [Concomitant]
  11. LACTULOSE [Concomitant]
  12. MEGACE [Concomitant]
  13. MOTILIUM [Concomitant]
  14. FLUVOXAMINE MALEATE [Concomitant]
  15. NEXIUM [Concomitant]
  16. NU-SEALS ASPIRIN (ACETYLSALICYLIC ACID) [Concomitant]
  17. PALLADONE [Concomitant]
  18. PARACETAMOL [Concomitant]
  19. PREDNISOLONE [Concomitant]
  20. SERETIDE (SALMETEROL, FLUTICASONE) [Concomitant]
  21. SINGULAIR [Concomitant]
  22. SPIRIVA [Concomitant]
  23. STILNOCT (ZOLPIDEM TARTRATE) [Concomitant]

REACTIONS (2)
  - HORNER'S SYNDROME [None]
  - SQUAMOUS CELL CARCINOMA [None]
